FAERS Safety Report 10431071 (Version 1)
Quarter: 2014Q3

REPORT INFORMATION
  Report Type: Spontaneous
  Country: US (occurrence: None)
  Receive Date: 20140902
  Receipt Date: 20140902
  Transmission Date: 20150326
  Serious: Yes (Hospitalization, Other)
  Sender: FDA-Public Use
  Company Number: ADR-2014-01565

PATIENT
  Age: 19 Year
  Sex: Female

DRUGS (2)
  1. BACLOFEN. [Suspect]
     Active Substance: BACLOFEN
     Indication: MYOCLONUS
  2. VALPROIC ACID. [Suspect]
     Active Substance: VALPROIC ACID
     Indication: MYOCLONUS

REACTIONS (11)
  - Muscle fatigue [None]
  - Myalgia [None]
  - Hyperammonaemia [None]
  - Condition aggravated [None]
  - Migraine [None]
  - No therapeutic response [None]
  - Coma [None]
  - Pain [None]
  - Ankle fracture [None]
  - Myoclonus [None]
  - Oedema [None]
